FAERS Safety Report 7341276-0 (Version None)
Quarter: 2011Q1

REPORT INFORMATION
  Report Type: 
  Country: None (occurrence: None)
  Receive Date: 20110309
  Receipt Date: 20110228
  Transmission Date: 20110831
  Serious: Yes (Hospitalization, Other)
  Sender: FDA-Public Use
  Company Number: PHHY2011US17057

PATIENT
  Sex: Female
  Weight: 57.7 kg

DRUGS (1)
  1. TOBI [Suspect]
     Indication: CYSTIC FIBROSIS
     Dosage: 300 MG, UNK

REACTIONS (18)
  - EPSTEIN-BARR VIRUS INFECTION [None]
  - ALCALIGENES INFECTION [None]
  - PERICARDIAL EFFUSION [None]
  - CHEST PAIN [None]
  - PLEURAL EFFUSION [None]
  - ATELECTASIS [None]
  - PLEURISY [None]
  - BRONCHITIS [None]
  - HYPERGLYCAEMIA [None]
  - BRONCHIECTASIS [None]
  - HAEMOGLOBIN DECREASED [None]
  - BRONCHIOLITIS [None]
  - ORGANISING PNEUMONIA [None]
  - NECROSIS [None]
  - SCOLIOSIS [None]
  - LEUKOCYTOSIS [None]
  - PSEUDOMONAS INFECTION [None]
  - PLEURAL FIBROSIS [None]
